FAERS Safety Report 21353955 (Version 2)
Quarter: 2022Q4

REPORT INFORMATION
  Report Type: Report from Study
  Country: ZA (occurrence: ZA)
  Receive Date: 20220920
  Receipt Date: 20221018
  Transmission Date: 20230113
  Serious: Yes (Other)
  Sender: FDA-Public Use
  Company Number: ZA-BAYER-2022A128810

PATIENT
  Sex: Female

DRUGS (34)
  1. EYLEA [Suspect]
     Active Substance: AFLIBERCEPT
     Indication: Age-related macular degeneration
     Dosage: 1X VIAL SOLUTION FOR INJECTION
     Dates: start: 20211215
  2. EYLEA [Suspect]
     Active Substance: AFLIBERCEPT
     Dosage: RIGHT EYE, SOLUTION FOR INJECTION
     Dates: start: 20211209, end: 20211209
  3. EYLEA [Suspect]
     Active Substance: AFLIBERCEPT
     Dosage: LEFT EYE, SOLUTION FOR INJECTION
     Dates: start: 20211209, end: 20211209
  4. EYLEA [Suspect]
     Active Substance: AFLIBERCEPT
     Dosage: RIGHT EYE, SOLUTION FOR INJECTION
     Dates: start: 20220131, end: 20220131
  5. EYLEA [Suspect]
     Active Substance: AFLIBERCEPT
     Dosage: LEFT EYE, SOLUTION FOR INJECTION
     Dates: start: 20220131, end: 20220131
  6. EYLEA [Suspect]
     Active Substance: AFLIBERCEPT
     Dosage: RIGHT EYE, SOLUTION FOR INJECTION
     Dates: start: 20220404, end: 20220404
  7. EYLEA [Suspect]
     Active Substance: AFLIBERCEPT
     Dosage: LEFT EYE, SOLUTION FOR INJECTION
     Dates: start: 20220404, end: 20220404
  8. EYLEA [Suspect]
     Active Substance: AFLIBERCEPT
     Dosage: RIGHT EYE, SOLUTION FOR INJECTION
     Dates: start: 20220613, end: 20220613
  9. EYLEA [Suspect]
     Active Substance: AFLIBERCEPT
     Dosage: LEFT EYE, SOLUTION FOR INJECTION
     Dates: start: 20220613, end: 20220613
  10. EYLEA [Suspect]
     Active Substance: AFLIBERCEPT
     Dosage: UNK, LEFT EYE,  SOLUTION FOR INJECTION
     Dates: start: 20220808, end: 20220808
  11. AVASTIN [Concomitant]
     Active Substance: BEVACIZUMAB
     Indication: Product used for unknown indication
     Dosage: UNK, RIGHT EYE
     Dates: start: 20200914, end: 20200914
  12. AVASTIN [Concomitant]
     Active Substance: BEVACIZUMAB
     Dosage: UNK, LEFT EYE
     Dates: start: 20200914, end: 20200914
  13. AVASTIN [Concomitant]
     Active Substance: BEVACIZUMAB
     Dosage: UNK, RIGHT EYE
     Dates: start: 20201019
  14. AVASTIN [Concomitant]
     Active Substance: BEVACIZUMAB
     Dosage: UNK, LEFT EYE
     Dates: start: 20200919
  15. AVASTIN [Concomitant]
     Active Substance: BEVACIZUMAB
     Dosage: UNK, RIGHT EYE
     Dates: start: 20201123
  16. AVASTIN [Concomitant]
     Active Substance: BEVACIZUMAB
     Dosage: UNK, LEFT EYE
     Dates: start: 20201123
  17. AVASTIN [Concomitant]
     Active Substance: BEVACIZUMAB
     Dosage: RIGHT EYE
     Dates: start: 20210118
  18. AVASTIN [Concomitant]
     Active Substance: BEVACIZUMAB
     Dosage: RIGHT EYE
     Dates: start: 20210222
  19. AVASTIN [Concomitant]
     Active Substance: BEVACIZUMAB
     Dosage: RIGHT EYE
     Dates: start: 20210329
  20. AVASTIN [Concomitant]
     Active Substance: BEVACIZUMAB
     Dosage: RIGHT EYE
     Dates: start: 20210517
  21. AVASTIN [Concomitant]
     Active Substance: BEVACIZUMAB
     Dosage: RIGHT EYE
     Dates: start: 20210621
  22. AVASTIN [Concomitant]
     Active Substance: BEVACIZUMAB
     Dosage: RIGHT EYE
     Dates: start: 20210802
  23. AVASTIN [Concomitant]
     Active Substance: BEVACIZUMAB
     Dosage: RIGHT EYE
     Dates: start: 20210906
  24. AVASTIN [Concomitant]
     Active Substance: BEVACIZUMAB
     Dosage: RIGHT EYE
     Dates: start: 20211011
  25. AVASTIN [Concomitant]
     Active Substance: BEVACIZUMAB
     Dosage: RIGHT EYE
     Dates: start: 20211115
  26. LUCENTIS [Concomitant]
     Active Substance: RANIBIZUMAB
     Indication: Product used for unknown indication
     Dosage: LEFT EYE
     Dates: start: 20210118
  27. LUCENTIS [Concomitant]
     Active Substance: RANIBIZUMAB
     Dosage: UNK, LEFT EYE
     Dates: start: 20210222
  28. LUCENTIS [Concomitant]
     Active Substance: RANIBIZUMAB
     Dosage: LEFT EYE
     Dates: start: 20220329
  29. LUCENTIS [Concomitant]
     Active Substance: RANIBIZUMAB
     Dosage: LEFT EYE
     Dates: start: 20210517
  30. LUCENTIS [Concomitant]
     Active Substance: RANIBIZUMAB
     Dosage: LEFT EYE
     Dates: start: 20210621
  31. LUCENTIS [Concomitant]
     Active Substance: RANIBIZUMAB
     Dosage: LEFT EYE
     Dates: start: 20210802
  32. LUCENTIS [Concomitant]
     Active Substance: RANIBIZUMAB
     Dosage: LEFT EYE
     Dates: start: 20210906
  33. LUCENTIS [Concomitant]
     Active Substance: RANIBIZUMAB
     Dosage: LEFT EYE
     Dates: start: 20211011
  34. LUCENTIS [Concomitant]
     Active Substance: RANIBIZUMAB
     Dosage: LEFT EYE
     Dates: start: 20211115

REACTIONS (2)
  - Maternal exposure during pregnancy [Unknown]
  - Product use issue [Unknown]
